FAERS Safety Report 8912353 (Version 1)
Quarter: 2012Q4

REPORT INFORMATION
  Report Type: 
  Country: US (occurrence: US)
  Receive Date: 20121116
  Receipt Date: 20121116
  Transmission Date: 20130627
  Serious: Yes (Hospitalization, Other)
  Sender: FDA-Public Use
  Company Number: US-BAYER-2012-119082

PATIENT
  Sex: Female

DRUGS (5)
  1. BAYER GENUINE ASPIRIN ORIGINAL STRENGTH [Suspect]
     Indication: PROPHYLAXIS
     Dosage: 325 mg, UNK
     Dates: start: 20121018, end: 20121022
  2. BAYER ASPIRIN REGIMEN ADULT LOW STRENGTH [Suspect]
     Dosage: 81 mg, UNK
     Dates: start: 20121023
  3. PLAVIX [Suspect]
     Indication: PROPHYLAXIS
     Dosage: 75 mg, QD
     Route: 048
     Dates: start: 20121018
  4. BLOOD PRESSURE MEDICATION (NOS) [Concomitant]
  5. OPIOIDS [Concomitant]

REACTIONS (9)
  - Transient ischaemic attack [None]
  - Feeling abnormal [Recovered/Resolved]
  - Oropharyngeal pain [Recovered/Resolved]
  - Tongue disorder [Recovered/Resolved]
  - Eye disorder [Recovered/Resolved]
  - Feeling abnormal [Unknown]
  - Oropharyngeal pain [Recovered/Resolved]
  - Tongue disorder [Unknown]
  - Eye disorder [Unknown]
